FAERS Safety Report 9158382 (Version 2)
Quarter: 2014Q1

REPORT INFORMATION
  Report Type: Spontaneous
  Country: FR (occurrence: FR)
  Receive Date: 20130312
  Receipt Date: 20140217
  Transmission Date: 20141002
  Serious: Yes (Life-Threatening, Hospitalization)
  Sender: FDA-Public Use
  Company Number: FR-ASTRAZENECA-2013SE14202

PATIENT
  Age: 34 Year
  Sex: Male

DRUGS (9)
  1. XEROQUEL [Suspect]
     Indication: SLEEP DISORDER
     Route: 048
     Dates: start: 201302, end: 20130221
  2. XEROQUEL [Suspect]
     Indication: SLEEP DISORDER
     Route: 048
     Dates: start: 20130222, end: 20130223
  3. XEROQUEL [Suspect]
     Indication: SLEEP DISORDER
     Dosage: UNSPECIFIED NUMBER OF XEROQUEL 50 MG
     Route: 048
  4. TERALITHE LP [Suspect]
     Indication: BIPOLAR I DISORDER
     Route: 048
     Dates: end: 20130221
  5. TERALITHE LP [Suspect]
     Indication: BIPOLAR I DISORDER
     Dosage: 16 G ONCE (40 TABLETS)
     Route: 048
     Dates: start: 20130222, end: 20130222
  6. TERALITHE LP [Suspect]
     Indication: BIPOLAR I DISORDER
     Route: 048
  7. ALPRAZOLAM [Suspect]
     Dosage: 20 DF ONCE
     Route: 048
     Dates: start: 20130222, end: 20130222
  8. NOZINAN [Suspect]
     Dosage: 8 DF ONCE
     Route: 048
     Dates: start: 20130222, end: 20130222
  9. LAMICTAL [Concomitant]

REACTIONS (4)
  - Intentional overdose [Recovered/Resolved]
  - Suicide attempt [Recovered/Resolved]
  - Delirium [Unknown]
  - Off label use [Recovered/Resolved]
